FAERS Safety Report 12735059 (Version 1)
Quarter: 2016Q3

REPORT INFORMATION
  Report Type: Spontaneous
  Country: US (occurrence: US)
  Receive Date: 20160912
  Receipt Date: 20160912
  Transmission Date: 20161109
  Serious: No
  Sender: FDA-Public Use
  Company Number: US-BAYER-2016-170883

PATIENT
  Age: 78 Year
  Sex: Female
  Weight: 58.96 kg

DRUGS (2)
  1. CHLOR-TRIMETON 4HOUR [Suspect]
     Active Substance: CHLORPHENIRAMINE MALEATE
     Dosage: 2 DF, HS
     Route: 048
     Dates: start: 1964
  2. CLARITIN-D 24 HOUR [Suspect]
     Active Substance: LORATADINE\PSEUDOEPHEDRINE SULFATE
     Indication: PNEUMONIA
     Route: 048

REACTIONS (3)
  - Off label use [None]
  - Product use issue [None]
  - Drug ineffective [Unknown]
